FAERS Safety Report 6123665-5 (Version None)
Quarter: 2009Q1

REPORT INFORMATION
  Report Type: 
  Country: None (occurrence: None)
  Receive Date: 20090319
  Receipt Date: 20090312
  Transmission Date: 20090719
  Serious: Yes (Other)
  Sender: FDA-Public Use
  Company Number: US-JNJFOC-20090303528

PATIENT
  Sex: Female

DRUGS (2)
  1. DURAGESIC-100 [Suspect]
     Indication: PAIN
     Route: 062
  2. NORCO [Concomitant]
     Indication: PAIN
     Route: 048

REACTIONS (3)
  - DRUG SCREEN FALSE POSITIVE [None]
  - INCORRECT DRUG ADMINISTRATION DURATION [None]
  - THYROID DISORDER [None]
